FAERS Safety Report 5257179-1 (Version None)
Quarter: 2007Q1

REPORT INFORMATION
  Report Type: 
  Country: None (occurrence: None)
  Receive Date: 20070302
  Receipt Date: 20070215
  Transmission Date: 20070707
  Serious: No
  Sender: FDA-Public Use
  Company Number: US-CVT-070053

PATIENT
  Age: 80 Year
  Sex: Male
  Weight: 95.2 kg

DRUGS (4)
  1. RANEXA [Suspect]
     Indication: ANGINA PECTORIS
     Dosage: 500 MG, BID, ORAL; 1000 MG, BID, ORAL
     Route: 048
     Dates: start: 20061221, end: 20070103
  2. RANEXA [Suspect]
     Indication: ANGINA PECTORIS
     Dosage: 500 MG, BID, ORAL; 1000 MG, BID, ORAL
     Route: 048
     Dates: start: 20070104, end: 20070206
  3. IMDUR [Concomitant]
  4. TOPROL-XL [Concomitant]

REACTIONS (6)
  - CONSTIPATION [None]
  - CONTUSION [None]
  - FALL [None]
  - HYPOGLYCAEMIA [None]
  - HYPOTENSION [None]
  - SYNCOPE [None]
